FAERS Safety Report 6857462-X (Version None)
Quarter: 2010Q3

REPORT INFORMATION
  Report Type: 
  Country: None (occurrence: None)
  Receive Date: 20100719
  Receipt Date: 20080119
  Transmission Date: 20110219
  Serious: No
  Sender: FDA-Public Use
  Company Number: US-PFIZER INC-2008009023

PATIENT

DRUGS (2)
  1. CHANTIX [Suspect]
  2. ANALGESICS [Interacting]
     Indication: PAIN

REACTIONS (2)
  - DRUG INTERACTION [None]
  - DYSPNOEA [None]
